FAERS Safety Report 6970513-7 (Version None)
Quarter: 2010Q3

REPORT INFORMATION
  Report Type: 
  Country: None (occurrence: None)
  Receive Date: 20100908
  Receipt Date: 20100906
  Transmission Date: 20110219
  Serious: Yes (Other)
  Sender: FDA-Public Use
  Company Number: FR-ROCHE-724031

PATIENT
  Sex: Female

DRUGS (5)
  1. AVASTIN [Suspect]
     Indication: PRODUCT USED FOR UNKNOWN INDICATION
     Route: 042
     Dates: start: 20100618, end: 20100618
  2. TAXOTERE [Suspect]
     Indication: PRODUCT USED FOR UNKNOWN INDICATION
     Dosage: STRENGTH: 20MG/ML
     Route: 042
     Dates: start: 20100618, end: 20100618
  3. TAXOTERE [Suspect]
     Route: 042
     Dates: start: 20100804
  4. ZOMETA [Suspect]
     Indication: PRODUCT USED FOR UNKNOWN INDICATION
     Route: 042
     Dates: start: 20100618, end: 20100618
  5. MEDROL [Concomitant]
     Route: 048
     Dates: start: 20100617, end: 20100621

REACTIONS (1)
  - HAND-FOOT-AND-MOUTH DISEASE [None]
